FAERS Safety Report 10086014 (Version 1)
Quarter: 2014Q2

REPORT INFORMATION
  Report Type: Spontaneous
  Country: IT (occurrence: None)
  Receive Date: 20140416
  Receipt Date: 20140416
  Transmission Date: 20141212
  Serious: Yes (Other)
  Sender: FDA-Public Use
  Company Number: AUR-APL-2014-04590

PATIENT
  Age: 58 Year
  Sex: Male

DRUGS (1)
  1. LEVETIRACETAM (LEVETIRACETAM) [Suspect]
     Indication: PRODUCT USED FOR UNKNOWN INDICATION

REACTIONS (2)
  - Convulsion [None]
  - Drug ineffective [None]
